FAERS Safety Report 12111893 (Version 2)
Quarter: 2016Q1

REPORT INFORMATION
  Report Type: Spontaneous
  Country: CA (occurrence: CA)
  Receive Date: 20160224
  Receipt Date: 20160325
  Transmission Date: 20160526
  Serious: Yes (Other)
  Sender: FDA-Public Use
  Company Number: CA-ROCHE-1715302

PATIENT
  Age: 66 Year
  Sex: Male

DRUGS (27)
  1. XOLAIR [Suspect]
     Active Substance: OMALIZUMAB
     Route: 058
     Dates: start: 20140910
  2. EURO-FER [Concomitant]
  3. XOLAIR [Suspect]
     Active Substance: OMALIZUMAB
     Route: 058
     Dates: start: 20141105
  4. XOLAIR [Suspect]
     Active Substance: OMALIZUMAB
     Route: 058
     Dates: start: 20141022
  5. ADVAIR HFA [Concomitant]
     Active Substance: FLUTICASONE PROPIONATE\SALMETEROL XINAFOATE
  6. NEXIUM [Concomitant]
     Active Substance: ESOMEPRAZOLE MAGNESIUM
  7. OMNARIS [Concomitant]
     Active Substance: CICLESONIDE
  8. XOLAIR [Suspect]
     Active Substance: OMALIZUMAB
     Route: 058
     Dates: start: 20140611
  9. FLOMAX [Concomitant]
     Active Substance: TAMSULOSIN HYDROCHLORIDE
  10. VENTOLIN [Concomitant]
     Active Substance: ALBUTEROL SULFATE
  11. FLOVENT [Concomitant]
     Active Substance: FLUTICASONE PROPIONATE
  12. XOLAIR [Suspect]
     Active Substance: OMALIZUMAB
     Indication: ASTHMA
     Route: 058
     Dates: start: 20140304
  13. NORVASC [Concomitant]
     Active Substance: AMLODIPINE BESYLATE
  14. ZANTAC [Concomitant]
     Active Substance: RANITIDINE HYDROCHLORIDE
  15. OPTICROM [Concomitant]
     Active Substance: CROMOLYN SODIUM
  16. XOLAIR [Suspect]
     Active Substance: OMALIZUMAB
     Route: 058
     Dates: start: 20140625
  17. XOLAIR [Suspect]
     Active Substance: OMALIZUMAB
     Route: 058
     Dates: start: 20141203
  18. XOLAIR [Suspect]
     Active Substance: OMALIZUMAB
     Route: 058
     Dates: start: 20160316
  19. AVODART [Concomitant]
     Active Substance: DUTASTERIDE
  20. XOLAIR [Suspect]
     Active Substance: OMALIZUMAB
     Route: 058
     Dates: start: 20140528
  21. XOLAIR [Suspect]
     Active Substance: OMALIZUMAB
     Route: 058
     Dates: start: 20150428
  22. CRESTOR [Concomitant]
     Active Substance: ROSUVASTATIN CALCIUM
  23. LAMICTAL [Concomitant]
     Active Substance: LAMOTRIGINE
  24. EZETROL [Concomitant]
     Active Substance: EZETIMIBE
  25. SINGULAIR [Concomitant]
     Active Substance: MONTELUKAST SODIUM
  26. JANUVIA [Concomitant]
     Active Substance: SITAGLIPTIN PHOSPHATE
  27. LASIX [Concomitant]
     Active Substance: FUROSEMIDE

REACTIONS (12)
  - Asthma [Unknown]
  - Headache [Unknown]
  - Forced expiratory volume decreased [Unknown]
  - Migraine [Unknown]
  - Muscle spasms [Unknown]
  - Foot deformity [Unknown]
  - Discomfort [Unknown]
  - Blood pressure systolic increased [Not Recovered/Not Resolved]
  - Abnormal behaviour [Unknown]
  - Nasopharyngitis [Unknown]
  - Pain in extremity [Unknown]
  - Body temperature decreased [Not Recovered/Not Resolved]

NARRATIVE: CASE EVENT DATE: 20140528
